FAERS Safety Report 7357808-2 (Version None)
Quarter: 2011Q1

REPORT INFORMATION
  Report Type: 
  Country: None (occurrence: None)
  Receive Date: 20110317
  Receipt Date: 20110307
  Transmission Date: 20110831
  Serious: Yes (Life-Threatening, Other)
  Sender: FDA-Public Use
  Company Number: US-MYLANLABS-2011S1002027

PATIENT
  Age: 16 Year
  Sex: Male
  Weight: 108.86 kg

DRUGS (4)
  1. FENTANYL [Concomitant]
  2. KETAMINE HCL [Suspect]
     Indication: ANAESTHESIA
     Route: 042
     Dates: start: 20110126, end: 20110126
  3. VERSED [Concomitant]
  4. ADVAIR DISKUS 100/50 [Concomitant]

REACTIONS (3)
  - BRADYCARDIA [None]
  - APNOEA [None]
  - HYPOTENSION [None]
